FAERS Safety Report 12984573 (Version 1)
Quarter: 2016Q4

REPORT INFORMATION
  Report Type: Spontaneous
  Country: US (occurrence: US)
  Receive Date: 20161129
  Receipt Date: 20161129
  Transmission Date: 20170207
  Serious: Yes (Death)
  Sender: FDA-Public Use
  Company Number: US-BEH-2016075524

PATIENT
  Age: 77 Year
  Sex: Male
  Weight: 88.89 kg

DRUGS (25)
  1. SAW PALMETTO                       /00833501/ [Concomitant]
     Active Substance: SAW PALMETTO
  2. NORVASC [Concomitant]
     Active Substance: AMLODIPINE BESYLATE
  3. FLONASE [Concomitant]
     Active Substance: FLUTICASONE PROPIONATE
  4. THEO-24 [Concomitant]
     Active Substance: THEOPHYLLINE ANHYDROUS
  5. HIZENTRA [Suspect]
     Active Substance: HUMAN IMMUNOGLOBULIN G
     Dosage: UNK
     Route: 058
  6. CELEXA [Concomitant]
     Active Substance: CITALOPRAM HYDROBROMIDE
  7. VITAMIN C [Concomitant]
     Active Substance: ASCORBIC ACID
  8. DIPHENHYDRAMINE. [Concomitant]
     Active Substance: DIPHENHYDRAMINE
  9. LASIX [Concomitant]
     Active Substance: FUROSEMIDE
  10. HIZENTRA [Suspect]
     Active Substance: HUMAN IMMUNOGLOBULIN G
     Indication: IMMUNODEFICIENCY COMMON VARIABLE
     Dosage: 9 G, UNK
     Route: 058
     Dates: start: 20130401
  11. PREDNISONE. [Concomitant]
     Active Substance: PREDNISONE
  12. ACETAMINOPHEN. [Concomitant]
     Active Substance: ACETAMINOPHEN
  13. OXYGEN. [Concomitant]
     Active Substance: OXYGEN
  14. GLUCOPHAGE [Concomitant]
     Active Substance: METFORMIN HYDROCHLORIDE
  15. TRAZODONE [Concomitant]
     Active Substance: TRAZODONE HYDROCHLORIDE
  16. ATIVAN [Concomitant]
     Active Substance: LORAZEPAM
  17. BIOTIN [Concomitant]
     Active Substance: BIOTIN
  18. POTASSIUM [Concomitant]
     Active Substance: POTASSIUM
  19. NITROGLYCERIN. [Concomitant]
     Active Substance: NITROGLYCERIN
  20. ASPIRIN. [Concomitant]
     Active Substance: ASPIRIN
  21. EPIPEN [Concomitant]
     Active Substance: EPINEPHRINE
  22. PROTONIX [Concomitant]
     Active Substance: PANTOPRAZOLE SODIUM
  23. LISINOPRIL. [Concomitant]
     Active Substance: LISINOPRIL
  24. MUCINEX [Concomitant]
     Active Substance: GUAIFENESIN
  25. FLOMAX [Concomitant]
     Active Substance: TAMSULOSIN HYDROCHLORIDE

REACTIONS (1)
  - Death [Fatal]

NARRATIVE: CASE EVENT DATE: 20161120
